FAERS Safety Report 6271387-2 (Version None)
Quarter: 2009Q3

REPORT INFORMATION
  Report Type: 
  Country: None (occurrence: None)
  Receive Date: 20090717
  Receipt Date: 20090708
  Transmission Date: 20100115
  Serious: Yes (Hospitalization)
  Sender: FDA-Public Use
  Company Number: EC-JNJFOC-20090703154

PATIENT
  Age: 67 Year
  Sex: Female

DRUGS (2)
  1. REMICADE [Suspect]
     Indication: PSORIASIS
     Route: 042
  2. TAVEGYL [Concomitant]
     Indication: PREMEDICATION
     Route: 065

REACTIONS (2)
  - HYPOTENSION [None]
  - ISCHAEMIC CARDIOMYOPATHY [None]
